FAERS Safety Report 7258664-3 (Version None)
Quarter: 2011Q1

REPORT INFORMATION
  Report Type: 
  Country: None (occurrence: None)
  Receive Date: 20110129
  Receipt Date: 20100602
  Transmission Date: 20110831
  Serious: No
  Sender: FDA-Public Use
  Company Number: US-ABBOTT-09P-163-0593610-00

PATIENT
  Sex: Male
  Weight: 79.45 kg

DRUGS (4)
  1. IMURAN [Concomitant]
     Indication: CROHN'S DISEASE
  2. HUMIRA [Suspect]
     Indication: CROHN'S DISEASE
     Dosage: DAY 29
     Route: 058
     Dates: start: 20090728
  3. ACETAMINOPHEN AND HYDROCODONE BITARTRATE [Suspect]
     Indication: JOINT SPRAIN
     Dates: start: 20100601
  4. PENTASA [Concomitant]
     Indication: CROHN'S DISEASE

REACTIONS (6)
  - HEADACHE [None]
  - VOMITING [None]
  - JOINT SPRAIN [None]
  - NAUSEA [None]
  - DIZZINESS [None]
  - POST LUMBAR PUNCTURE SYNDROME [None]
